APPROVED DRUG PRODUCT: MYCOPHENOLATE SODIUM
Active Ingredient: MYCOPHENOLATE SODIUM
Strength: EQ 360MG BASE
Dosage Form/Route: TABLET, DELAYED RELEASE;ORAL
Application: A202720 | Product #002
Applicant: TEVA PHARMACEUTICALS USA
Approved: Oct 30, 2014 | RLD: No | RS: No | Type: DISCN